FAERS Safety Report 9363048 (Version 1)
Quarter: 2013Q2

REPORT INFORMATION
  Report Type: Spontaneous
  Country: US (occurrence: US)
  Receive Date: 20130624
  Receipt Date: 20130624
  Transmission Date: 20140414
  Serious: No
  Sender: FDA-Public Use
  Company Number: US-PFIZER INC-2013185189

PATIENT
  Age: 52 Year
  Sex: Female

DRUGS (7)
  1. XELJANZ [Suspect]
     Indication: RHEUMATOID ARTHRITIS
     Dosage: 5 MG, 2X/DAY
     Route: 048
  2. PLAQUENIL [Concomitant]
     Dosage: 200 MG, UNK
  3. LEVOXYL [Concomitant]
     Dosage: 25 UG, UNK
  4. ARAVA [Concomitant]
     Dosage: 10 MG, UNK
  5. IRON [Concomitant]
     Dosage: 325 MG, UNK
  6. VITAMIN D [Concomitant]
     Dosage: 400 IU, UNK
  7. HYDROCO/APAP [Concomitant]
     Dosage: HYDROCODONE BITARTRATE 10 UNK/ PARACETAMOL 325 UNK, UNK

REACTIONS (1)
  - Nausea [Unknown]
